FAERS Safety Report 15035237 (Version 1)
Quarter: 2018Q2

REPORT INFORMATION
  Report Type: Spontaneous
  Country: US (occurrence: US)
  Receive Date: 20180620
  Receipt Date: 20180620
  Transmission Date: 20180711
  Serious: No
  Sender: FDA-Public Use
  Company Number: US-AUROBINDO-AUR-APL-2018-015630

PATIENT
  Sex: Female

DRUGS (4)
  1. RISPERIDONE. [Concomitant]
     Active Substance: RISPERIDONE
     Indication: ANXIETY
     Dosage: 0.25 MILLIGRAM, TWO TIMES A DAY
     Route: 065
  2. BUSPIRONE [Concomitant]
     Active Substance: BUSPIRONE HYDROCHLORIDE
     Indication: ANXIETY
     Dosage: ONE TO TWO TIMES A DAY AS NEEDED
     Route: 065
  3. ATOMOXETINE CAPSULES USP 25 MG [Suspect]
     Active Substance: ATOMOXETINE
     Indication: ATTENTION DEFICIT/HYPERACTIVITY DISORDER
     Dosage: 25 MILLIGRAM, ONCE A DAY
     Route: 048
     Dates: start: 20180131, end: 20180213
  4. FLUOXETINE [Concomitant]
     Active Substance: FLUOXETINE HYDROCHLORIDE
     Indication: PRODUCT USED FOR UNKNOWN INDICATION

REACTIONS (12)
  - Abnormal behaviour [Unknown]
  - Condition aggravated [Recovered/Resolved]
  - Disturbance in attention [Recovered/Resolved]
  - Withdrawal syndrome [Unknown]
  - Drug ineffective [Recovered/Resolved]
  - Impulse-control disorder [Unknown]
  - Wrong technique in product usage process [Unknown]
  - Irritability [Recovered/Resolved]
  - Anxiety [Recovered/Resolved]
  - Product substitution issue [Recovered/Resolved]
  - Insomnia [Recovered/Resolved]
  - Aggression [Unknown]
